FAERS Safety Report 8150229-4 (Version None)
Quarter: 2012Q1

REPORT INFORMATION
  Report Type: 
  Country: None (occurrence: None)
  Receive Date: 20120220
  Receipt Date: 20120214
  Transmission Date: 20120608
  Serious: No
  Sender: FDA-Public Use
  Company Number: US-PFIZER INC-2012010869

PATIENT
  Sex: Female

DRUGS (3)
  1. SYNTHROID [Concomitant]
     Indication: HYPOTHYROIDISM
     Dosage: 50 UG, UNK
     Dates: start: 20120113
  2. SUTENT [Suspect]
     Indication: RENAL CELL CARCINOMA
     Dosage: 37.5 MG, 1X/DAY, 3 WEEKS ON/2 WEEKS OFF
     Route: 048
     Dates: start: 20110201
  3. SUTENT [Suspect]
     Indication: METASTASES TO LUNG

REACTIONS (1)
  - VULVOVAGINAL PRURITUS [None]
